FAERS Safety Report 7193995 (Version 5)
Quarter: 2012Q4

REPORT INFORMATION
  Report Type: 
  Country: US (occurrence: US)
  Receive Date: 20091130
  Receipt Date: 20121213
  Transmission Date: 20130627
  Serious: Yes (Other)
  Sender: FDA-Public Use
  Company Number: US-BAYER-200940173NA

PATIENT
  Age: 47 Year
  Sex: Male
  Weight: 76.36 kg

DRUGS (12)
  1. MAGNEVIST [Suspect]
     Indication: ARTHROGRAM
     Dosage: 1 ml, ONCE
     Dates: start: 20070823, end: 20070823
  2. GADOLINIUM [Suspect]
     Indication: MRI
  3. ASPIRIN [Concomitant]
     Dates: start: 2004, end: 2009
  4. FUROSEMIDE [Concomitant]
     Dates: start: 2008, end: 2009
  5. LISINOPRIL [Concomitant]
     Dates: start: 1986, end: 2009
  6. METOPROLOL [Concomitant]
     Dates: start: 2008, end: 2009
  7. LOPRESSOR [Concomitant]
     Dates: start: 2004, end: 2008
  8. SULAR [Concomitant]
     Dates: start: 1986, end: 2009
  9. ZOLOFT [Concomitant]
     Dates: start: 1986, end: 2009
  10. LIPITOR [Concomitant]
  11. CELEBREX [Concomitant]
  12. INSULIN NOVOLIN 70/30 [Concomitant]

REACTIONS (21)
  - Nephrogenic systemic fibrosis [Not Recovered/Not Resolved]
  - Skin tightness [Not Recovered/Not Resolved]
  - Skin swelling [Not Recovered/Not Resolved]
  - Skin hypertrophy [Not Recovered/Not Resolved]
  - Joint stiffness [Not Recovered/Not Resolved]
  - Arthralgia [Not Recovered/Not Resolved]
  - Oedema peripheral [Not Recovered/Not Resolved]
  - Skin fibrosis [Not Recovered/Not Resolved]
  - Fibrosis [Not Recovered/Not Resolved]
  - Joint swelling [Not Recovered/Not Resolved]
  - Pain [Not Recovered/Not Resolved]
  - General physical health deterioration [Not Recovered/Not Resolved]
  - Deformity [Not Recovered/Not Resolved]
  - Scar [Not Recovered/Not Resolved]
  - Depression [Not Recovered/Not Resolved]
  - Nervousness [Not Recovered/Not Resolved]
  - Skin induration [Not Recovered/Not Resolved]
  - Erythema [Not Recovered/Not Resolved]
  - Joint range of motion decreased [Not Recovered/Not Resolved]
  - Emotional distress [None]
  - Anhedonia [None]
